FAERS Safety Report 4673463-4 (Version None)
Quarter: 2005Q2

REPORT INFORMATION
  Report Type: 
  Country: None (occurrence: None)
  Receive Date: 20050525
  Receipt Date: 20050515
  Transmission Date: 20051028
  Serious: Yes (Other)
  Sender: FDA-Public Use
  Company Number: CN-GLAXOSMITHKLINE-B0381702A

PATIENT
  Age: 41 Year
  Sex: Male

DRUGS (5)
  1. HEPTODIN [Suspect]
     Indication: HEPATITIS B
     Dosage: 100MG PER DAY
     Route: 048
     Dates: start: 20050428, end: 20050501
  2. LECITHIN [Concomitant]
     Route: 042
  3. DIAMMONIUM GLYCYRRHIZINATE [Concomitant]
     Route: 042
  4. DANSHEN [Concomitant]
     Route: 042
  5. TIOPRONIN [Concomitant]
     Route: 042

REACTIONS (6)
  - BONE MARROW DEPRESSION [None]
  - DRUG HYPERSENSITIVITY [None]
  - FEELING COLD [None]
  - NEUTROPENIA [None]
  - PYREXIA [None]
  - WHITE BLOOD CELL COUNT DECREASED [None]
